FAERS Safety Report 20051520 (Version 1)
Quarter: 2021Q4

REPORT INFORMATION
  Report Type: Spontaneous
  Country: HU (occurrence: None)
  Receive Date: 20211110
  Receipt Date: 20211110
  Transmission Date: 20220303
  Serious: Yes (Other)
  Sender: FDA-Public Use
  Company Number: 2021A798213

PATIENT
  Age: 56 Year
  Sex: Female

DRUGS (1)
  1. LYNPARZA [Suspect]
     Active Substance: OLAPARIB
     Indication: Ovarian endometrioid carcinoma
     Route: 048
     Dates: start: 20210605

REACTIONS (3)
  - Rash macular [Recovering/Resolving]
  - Skin exfoliation [Recovering/Resolving]
  - Rash [Recovering/Resolving]
